FAERS Safety Report 4406932-2 (Version None)
Quarter: 2004Q3

REPORT INFORMATION
  Report Type: 
  Country: None (occurrence: None)
  Receive Date: 20040723
  Receipt Date: 20040716
  Transmission Date: 20050211
  Serious: Yes (Hospitalization)
  Sender: FDA-Public Use
  Company Number: PHNU2004DE02502

PATIENT
  Sex: Male

DRUGS (4)
  1. ZOMETA [Suspect]
     Indication: METASTASES TO BONE
     Dosage: 4 MG, ONCE/SINGLE
     Dates: start: 20040713, end: 20040713
  2. BUTAZOLIDIN [Concomitant]
     Dates: start: 20040712, end: 20040712
  3. AMBENE [Concomitant]
  4. ANTINEOPLASTIC AGENTS [Concomitant]
     Indication: PROSTATE CANCER

REACTIONS (4)
  - HAEMOGLOBIN DECREASED [None]
  - HAEMORRHAGE [None]
  - HEPATOCELLULAR DAMAGE [None]
  - PROTHROMBIN TIME PROLONGED [None]
